FAERS Safety Report 9501652 (Version 1)
Quarter: 2013Q3

REPORT INFORMATION
  Report Type: Spontaneous
  Country: NO (occurrence: NO)
  Receive Date: 20130905
  Receipt Date: 20130905
  Transmission Date: 20140515
  Serious: Yes (Hospitalization, Other)
  Sender: FDA-Public Use
  Company Number: NO-ABBOTT-13X-122-1138226-00

PATIENT
  Age: 55 Year
  Sex: Male

DRUGS (2)
  1. CREON [Suspect]
     Indication: PANCREATIC CARCINOMA
     Dates: start: 201308, end: 201308
  2. CREON [Suspect]
     Dates: start: 201308, end: 201308

REACTIONS (4)
  - Cholangitis [Recovering/Resolving]
  - Abdominal pain upper [Recovering/Resolving]
  - Abdominal pain [Recovering/Resolving]
  - Sepsis [Unknown]
